FAERS Safety Report 16351671 (Version 1)
Quarter: 2019Q2

REPORT INFORMATION
  Report Type: Spontaneous
  Country: NL (occurrence: NL)
  Receive Date: 20190524
  Receipt Date: 20190524
  Transmission Date: 20190711
  Serious: Yes (Other)
  Sender: FDA-Public Use
  Company Number: NL-TEVA-2019-NL-1053227

PATIENT
  Sex: Male

DRUGS (1)
  1. DEXAMETHASONE. [Suspect]
     Active Substance: DEXAMETHASONE
     Indication: POSTOPERATIVE CARE
     Dosage: - 6X PER DAY 1 DROP IN RIGHT EYE UP TO 3 MONTHS
     Dates: start: 20190205, end: 20190412

REACTIONS (1)
  - Hypoglycaemia [Recovered/Resolved]
